FAERS Safety Report 4951512-3 (Version None)
Quarter: 2006Q1

REPORT INFORMATION
  Report Type: 
  Country: None (occurrence: None)
  Receive Date: 20060317
  Receipt Date: 20060228
  Transmission Date: 20060701
  Serious: Yes (Hospitalization)
  Sender: FDA-Public Use
  Company Number: 6021094

PATIENT
  Age: 88 Year
  Sex: Female

DRUGS (7)
  1. ATENOLOL [Suspect]
     Indication: DRUG USE FOR UNKNOWN INDICATION
     Dosage: 50,000 MG; (50 MG, 1 IN 1 D) ORAL
     Route: 048
  2. ZOLOFT [Suspect]
     Dosage: 50 MG (50 MG, 1 D);
  3. SOLPRIN [Suspect]
     Dosage: 150 MG (150 MG, 1 D);
  4. COLOXYL [Suspect]
     Dosage: 2 DOSAGE FORMS (2 DOSAGE FORMS, 1 D)
  5. CALTRATE [Suspect]
     Dosage: 2 DOSAGE FORMS (1 DOSAGE FORMS, 1 D)
  6. IRBESARTAN [Suspect]
     Dosage: 150 MG (150 MG, 1 D)
  7. AMARYL [Suspect]
     Dosage: 1 MG (1 MG, 1 D)

REACTIONS (2)
  - HYPONATRAEMIA [None]
  - THIRST [None]
